FAERS Safety Report 11650884 (Version 1)
Quarter: 2015Q4

REPORT INFORMATION
  Report Type: Spontaneous
  Country: US (occurrence: US)
  Receive Date: 20151021
  Receipt Date: 20151021
  Transmission Date: 20160304
  Serious: No
  Sender: FDA-Public Use
  Company Number: US-PFIZER INC-2015337785

PATIENT
  Age: 73 Year
  Sex: Female
  Weight: 66 kg

DRUGS (11)
  1. ADVIL COLD AND SINUS [Suspect]
     Active Substance: IBUPROFEN\PSEUDOEPHEDRINE HYDROCHLORIDE
     Indication: RESPIRATORY DISORDER
  2. SYNTHROID [Concomitant]
     Active Substance: LEVOTHYROXINE SODIUM
     Dosage: 100 ?G, DAILY
     Route: 048
     Dates: start: 2014
  3. METHOTREXATE [Concomitant]
     Active Substance: METHOTREXATE
     Dosage: 17.5 MG, WEEKLY
  4. ADVIL [Concomitant]
     Active Substance: IBUPROFEN
     Indication: HEADACHE
     Dosage: 3 CAPLETS TWICE A DAY, AS NEEDED
  5. ADVIL COLD AND SINUS [Suspect]
     Active Substance: IBUPROFEN\PSEUDOEPHEDRINE HYDROCHLORIDE
     Indication: NASOPHARYNGITIS
     Dosage: 200 MG, 2X/DAY, AS NEEDED
     Dates: start: 2010
  6. ADVIL COLD AND SINUS [Suspect]
     Active Substance: IBUPROFEN\PSEUDOEPHEDRINE HYDROCHLORIDE
     Indication: COUGH
  7. ADVIL [Concomitant]
     Active Substance: IBUPROFEN
     Indication: BACK PAIN
  8. METHOTREXATE [Concomitant]
     Active Substance: METHOTREXATE
     Indication: RHEUMATOID ARTHRITIS
     Dosage: 12.5 MG, WEEKLY
  9. SYNTHROID [Concomitant]
     Active Substance: LEVOTHYROXINE SODIUM
     Indication: THYROID DISORDER
     Dosage: 88 ?G, DAILY
     Route: 048
     Dates: end: 2014
  10. LOVASTATIN. [Concomitant]
     Active Substance: LOVASTATIN
     Indication: BLOOD CHOLESTEROL
     Dosage: 20 MG, DAILY
     Route: 048
  11. ADVAIR HFA [Concomitant]
     Active Substance: FLUTICASONE PROPIONATE\SALMETEROL XINAFOATE
     Indication: CHRONIC OBSTRUCTIVE PULMONARY DISEASE
     Dosage: 1 INHALATION, 2X/DAY
     Dates: start: 201507, end: 201509

REACTIONS (7)
  - Swelling face [Unknown]
  - Respiratory disorder [Unknown]
  - Nasopharyngitis [Unknown]
  - Cough [Unknown]
  - Pain [Unknown]
  - Sinusitis [Unknown]
  - Drug effect incomplete [Unknown]

NARRATIVE: CASE EVENT DATE: 20151005
